FAERS Safety Report 5080572-7 (Version None)
Quarter: 2006Q3

REPORT INFORMATION
  Report Type: 
  Country: None (occurrence: None)
  Receive Date: 20060815
  Receipt Date: 20050516
  Transmission Date: 20061208
  Serious: Yes (Other)
  Sender: FDA-Public Use
  Company Number: US-GLAXOSMITHKLINE-A0559047A

PATIENT
  Sex: Male

DRUGS (5)
  1. PAXIL [Suspect]
     Indication: ANXIETY
     Route: 048
  2. RISPERDAL [Concomitant]
     Dates: start: 20010101
  3. RESTORIL [Concomitant]
  4. KLONOPIN [Concomitant]
     Dates: start: 20010201
  5. ZOLOFT [Concomitant]
     Dates: start: 20010301

REACTIONS (16)
  - ANGER [None]
  - ANHEDONIA [None]
  - ASTHENIA [None]
  - DELUSION [None]
  - DISTURBANCE IN ATTENTION [None]
  - DRUG INEFFECTIVE [None]
  - DRUG WITHDRAWAL SYNDROME [None]
  - HALLUCINATION, AUDITORY [None]
  - INSOMNIA [None]
  - IRRITABILITY [None]
  - PANIC ATTACK [None]
  - PARANOID PERSONALITY DISORDER [None]
  - PSYCHIATRIC SYMPTOM [None]
  - SUICIDAL IDEATION [None]
  - TREMOR [None]
  - WEIGHT DECREASED [None]
